FAERS Safety Report 7991363-9 (Version None)
Quarter: 2011Q4

REPORT INFORMATION
  Report Type: 
  Country: None (occurrence: None)
  Receive Date: 20111219
  Receipt Date: 20111213
  Transmission Date: 20120403
  Serious: Yes (Hospitalization, Other)
  Sender: FDA-Public Use
  Company Number: US-PFIZER INC-2011159015

PATIENT
  Sex: Female
  Weight: 18.594 kg

DRUGS (9)
  1. CHANTIX [Suspect]
     Dosage: 0.5 MG, 2X/DAY
     Route: 048
     Dates: start: 20110701
  2. CHANTIX [Suspect]
     Dosage: UNK
     Route: 048
     Dates: start: 20110101, end: 20111212
  3. VINCRISTINE SULFATE [Suspect]
     Dosage: UNK
     Dates: start: 20110801, end: 20111101
  4. VALIUM [Concomitant]
     Dosage: UNK
  5. CHANTIX [Suspect]
     Indication: SMOKING CESSATION THERAPY
     Dosage: 0.5 MG, 1X/DAY
     Route: 048
  6. CHANTIX [Suspect]
     Dosage: 1 MG, UNK
     Route: 048
  7. DILAUDID [Concomitant]
     Indication: PAIN
     Dosage: 8 MG, EVERY 4 HRS
  8. CHANTIX [Suspect]
     Dosage: UNK
     Route: 048
     Dates: start: 20110101
  9. DILAUDID [Concomitant]
     Dosage: UNK

REACTIONS (9)
  - WHEEZING [None]
  - VITAMIN D DECREASED [None]
  - BLOOD MAGNESIUM DECREASED [None]
  - MANIA [None]
  - HYPOTHYROIDISM [None]
  - OXYGEN SATURATION DECREASED [None]
  - PRURITUS [None]
  - RESPIRATORY FAILURE [None]
  - DEPRESSION [None]
